FAERS Safety Report 6797378-0 (Version None)
Quarter: 2010Q2

REPORT INFORMATION
  Report Type: 
  Country: None (occurrence: None)
  Receive Date: 20100623
  Receipt Date: 20100611
  Transmission Date: 20101027
  Serious: Yes (Hospitalization)
  Sender: FDA-Public Use
  Company Number: 7007702

PATIENT
  Age: 26 Year
  Sex: Female

DRUGS (3)
  1. REBIF [Suspect]
     Indication: MULTIPLE SCLEROSIS
     Dosage: 44 MCG, 3 IN 1 WK, SUBCUTANEOUS
     Route: 058
     Dates: start: 20091030, end: 20100525
  2. PAXIL [Concomitant]
  3. ORTHO TRI-CYCLEN [Concomitant]

REACTIONS (8)
  - HAEMATOTOXICITY [None]
  - HEART RATE INCREASED [None]
  - HYPOPHAGIA [None]
  - NO THERAPEUTIC RESPONSE [None]
  - PAIN [None]
  - PERIRECTAL ABSCESS [None]
  - SEPSIS [None]
  - VOMITING [None]
